FAERS Safety Report 23150499 (Version 1)
Quarter: 2023Q4

REPORT INFORMATION
  Report Type: Spontaneous
  Country: NL (occurrence: NL)
  Receive Date: 20231106
  Receipt Date: 20231106
  Transmission Date: 20240110
  Serious: Yes (Life-Threatening, Hospitalization)
  Sender: FDA-Public Use
  Company Number: NL-MEDEXUS PHARMA, INC.-2023MED00461

PATIENT
  Sex: Male

DRUGS (4)
  1. METHOTREXATE [Suspect]
     Active Substance: METHOTREXATE
     Indication: Suicide attempt
     Dosage: 10 TABLETS
     Route: 048
  2. DAPSONE [Suspect]
     Active Substance: DAPSONE
     Indication: Suicide attempt
     Dosage: GREATER THAN 200 TABLETS
     Route: 048
  3. METOPROLOL [Suspect]
     Active Substance: METOPROLOL
     Indication: Suicide attempt
     Dosage: 1 BOX OF 50 MG
     Route: 048
  4. FERROUS FUMARATE [Suspect]
     Active Substance: FERROUS FUMARATE
     Indication: Suicide attempt
     Dosage: 2 BOXES AT 200 MG
     Route: 048

REACTIONS (3)
  - Suicide attempt [Recovered/Resolved]
  - Toxicity to various agents [Recovered/Resolved]
  - Confusional state [Recovered/Resolved]
